FAERS Safety Report 7407461-4 (Version None)
Quarter: 2011Q2

REPORT INFORMATION
  Report Type: 
  Country: None (occurrence: None)
  Receive Date: 20110411
  Receipt Date: 20110329
  Transmission Date: 20111010
  Serious: Yes (Death, Life-Threatening, Disabling, Other)
  Sender: FDA-Public Use
  Company Number: US-BAYER-2011-027284

PATIENT
  Age: 44 Year
  Sex: Female

DRUGS (2)
  1. AVELOX [Suspect]
  2. CORTICOSTEROIDS [Concomitant]

REACTIONS (3)
  - CYANOSIS [None]
  - LOSS OF CONSCIOUSNESS [None]
  - DEATH [None]
